FAERS Safety Report 9250401 (Version 2)
Quarter: 2013Q2

REPORT INFORMATION
  Report Type: Spontaneous
  Country: US (occurrence: US)
  Receive Date: 20130424
  Receipt Date: 20130530
  Transmission Date: 20140414
  Serious: No
  Sender: FDA-Public Use
  Company Number: US-009507513-1304USA006305

PATIENT
  Sex: 0

DRUGS (2)
  1. TEMODAR [Suspect]
     Indication: NEUROENDOCRINE CARCINOMA METASTATIC
     Dosage: 150-200 MG/M2 DIVIDED INTO TWO DOSES DAILY ON DAYS 10-14 OF A 28-DAY CYCLE
  2. CAPECITABINE [Suspect]
     Indication: NEUROENDOCRINE CARCINOMA METASTATIC
     Dosage: 600 MG/M2 ORALLY TWICE DAILY ON DAYS 1-14 OF A 28-DAY CYCLE
     Route: 048

REACTIONS (1)
  - Thrombocytopenia [Unknown]
